FAERS Safety Report 9480988 (Version 1)
Quarter: 2013Q3

REPORT INFORMATION
  Report Type: Spontaneous
  Country: US (occurrence: US)
  Receive Date: 20130828
  Receipt Date: 20130828
  Transmission Date: 20140515
  Serious: Yes (Death, Hospitalization, Other)
  Sender: FDA-Public Use
  Company Number: US-AMGEN-KDL145395

PATIENT
  Age: 78 Year
  Sex: 0

DRUGS (3)
  1. ENBREL [Suspect]
     Indication: RHEUMATOID ARTHRITIS
     Dosage: UNK UNK, UNK
     Route: 065
     Dates: start: 20011001
  2. HYDROXYCHLOROQUINE SULFATE [Concomitant]
     Dosage: UNK UNK, UNK
  3. FLUTICASONE PROPIONATE [Concomitant]
     Dosage: UNK UNK, UNK

REACTIONS (12)
  - Septic shock [Fatal]
  - Dyspnoea [Unknown]
  - Pharyngitis streptococcal [Unknown]
  - Knee arthroplasty [Unknown]
  - Gastrointestinal ulcer [Unknown]
  - Diverticulitis [Unknown]
  - Gastrointestinal haemorrhage [Unknown]
  - Platelet count decreased [Unknown]
  - Pain in extremity [Unknown]
  - Local swelling [Unknown]
  - Erythema [Unknown]
  - Feeling hot [Unknown]
